FAERS Safety Report 13385527 (Version 1)
Quarter: 2017Q1

REPORT INFORMATION
  Report Type: Spontaneous
  Country: US (occurrence: US)
  Receive Date: 20170330
  Receipt Date: 20170330
  Transmission Date: 20170429
  Serious: No
  Sender: FDA-Public Use
  Company Number: US-AUROBINDO-AUR-APL-2014-13246

PATIENT
  Sex: Female
  Weight: 63.95 kg

DRUGS (1)
  1. GABAPENTIN CAPSULES 300 MG [Suspect]
     Active Substance: GABAPENTIN
     Indication: NERVE COMPRESSION
     Dosage: 300 MG, UNK
     Route: 048
     Dates: start: 20141013

REACTIONS (5)
  - Product quality issue [Recovered/Resolved]
  - Off label use [Recovered/Resolved]
  - Pain [Recovered/Resolved]
  - Product physical issue [Recovered/Resolved]
  - Nerve compression [Recovered/Resolved]
